FAERS Safety Report 13696573 (Version 1)
Quarter: 2017Q2

REPORT INFORMATION
  Report Type: Spontaneous
  Country: US (occurrence: US)
  Receive Date: 20170627
  Receipt Date: 20170627
  Transmission Date: 20170830
  Serious: Yes (Hospitalization)
  Sender: FDA-Public Use
  Company Number: None

PATIENT
  Age: 68 Year
  Sex: Male
  Weight: 72.3 kg

DRUGS (1)
  1. DALTEPARIN 150IU/KG [Suspect]
     Active Substance: DALTEPARIN
     Indication: DEEP VEIN THROMBOSIS
     Dosage: 150 IU/KG DAILY SUBCUTANEOUS
     Route: 058
     Dates: start: 20161122, end: 20170315

REACTIONS (29)
  - Tachycardia [None]
  - Haematoma [None]
  - Pericardial effusion [None]
  - Anaemia [None]
  - Lymphocyte count decreased [None]
  - Urinary retention [None]
  - Dehydration [None]
  - Hyperglycaemia [None]
  - International normalised ratio increased [None]
  - Respiratory failure [None]
  - Pneumonia aspiration [None]
  - Aspartate aminotransferase increased [None]
  - Cardiac tamponade [None]
  - Weight increased [None]
  - Fatigue [None]
  - Hypoalbuminaemia [None]
  - Dyspnoea [None]
  - Pain in extremity [None]
  - Acute kidney injury [None]
  - Septic shock [None]
  - Pleural effusion [None]
  - Pneumothorax [None]
  - Alanine aminotransferase increased [None]
  - Muscular weakness [None]
  - Hyperkalaemia [None]
  - Hyponatraemia [None]
  - Hypovolaemic shock [None]
  - Hypothyroidism [None]
  - Retroperitoneal haemorrhage [None]

NARRATIVE: CASE EVENT DATE: 20170312
